FAERS Safety Report 9682300 (Version 2)
Quarter: 2013Q4

REPORT INFORMATION
  Report Type: Spontaneous
  Country: GB (occurrence: GB)
  Receive Date: 20131112
  Receipt Date: 20131224
  Transmission Date: 20140711
  Serious: Yes (Hospitalization)
  Sender: FDA-Public Use
  Company Number: GB-ROCHE-1299119

PATIENT
  Sex: Male

DRUGS (1)
  1. INVIRASE [Suspect]
     Indication: HIV INFECTION
     Route: 048

REACTIONS (1)
  - Cerebrovascular accident [Unknown]
